FAERS Safety Report 17794856 (Version 1)
Quarter: 2020Q2

REPORT INFORMATION
  Report Type: Report from Study
  Country: IT (occurrence: IT)
  Receive Date: 20200516
  Receipt Date: 20200516
  Transmission Date: 20200714
  Serious: Yes (Hospitalization)
  Sender: FDA-Public Use
  Company Number: IT-TEVA-2020-IT-1235076

PATIENT
  Age: 32 Year
  Sex: Female

DRUGS (4)
  1. OLANZAPINE. [Suspect]
     Active Substance: OLANZAPINE
     Indication: DRUG ABUSE
     Route: 048
     Dates: start: 20200422, end: 20200422
  2. TAVOR (LORAZEPAM) [Suspect]
     Active Substance: LORAZEPAM
     Indication: DRUG ABUSE
     Dates: start: 20200422, end: 20200422
  3. SERTRALINE HYDROCHLORIDE. [Suspect]
     Active Substance: SERTRALINE HYDROCHLORIDE
     Indication: DRUG ABUSE
     Route: 048
     Dates: start: 20200422, end: 20200422
  4. STILNOX 10 MG COMPRESSE RIVESTITE CON FILM [Suspect]
     Active Substance: ZOLPIDEM TARTRATE
     Indication: DRUG ABUSE
     Dosage: 10 DOSAGE FORMS
     Route: 048
     Dates: start: 20200422, end: 20200422

REACTIONS (4)
  - Toxicity to various agents [Recovering/Resolving]
  - Drug abuse [Recovering/Resolving]
  - Hyponatraemia [Recovering/Resolving]
  - Coma [Recovering/Resolving]

NARRATIVE: CASE EVENT DATE: 20200423
